FAERS Safety Report 4976997-8 (Version None)
Quarter: 2006Q2

REPORT INFORMATION
  Report Type: 
  Country: None (occurrence: None)
  Receive Date: 20060412
  Receipt Date: 20060330
  Transmission Date: 20061013
  Serious: Yes (Other)
  Sender: FDA-Public Use
  Company Number: 230087M06USA

PATIENT
  Age: 54 Year
  Sex: Male

DRUGS (3)
  1. REBIF [Suspect]
     Indication: MULTIPLE SCLEROSIS
     Dosage: 44 MCG, 3 IN 1 WEEKS, SUBCUTANEOUS
     Route: 058
     Dates: start: 20021201
  2. TYLENOL (COTYLENOL) [Concomitant]
  3. ASPIRIN [Concomitant]

REACTIONS (3)
  - CARDIOMYOPATHY [None]
  - EJECTION FRACTION DECREASED [None]
  - VENTRICULAR DYSFUNCTION [None]
